FAERS Safety Report 12421454 (Version 1)
Quarter: 2016Q2

REPORT INFORMATION
  Report Type: Spontaneous
  Country: US (occurrence: US)
  Receive Date: 20160531
  Receipt Date: 20160531
  Transmission Date: 20160815
  Serious: Yes (Other)
  Sender: FDA-Public Use
  Company Number: US-BAYER-2016-097413

PATIENT
  Age: 55 Year
  Sex: Female

DRUGS (1)
  1. SORAFENIB (RAF KINASE INHIBITOR) [Suspect]
     Active Substance: SORAFENIB
     Indication: LYMPHANGIOMA
     Dosage: 100 MG, BID
     Route: 048

REACTIONS (3)
  - Drug ineffective for unapproved indication [None]
  - Off label use [None]
  - Palmar-plantar erythrodysaesthesia syndrome [None]
